FAERS Safety Report 24580452 (Version 1)
Quarter: 2024Q4

REPORT INFORMATION
  Report Type: Spontaneous
  Country: CA (occurrence: CA)
  Receive Date: 20241105
  Receipt Date: 20241105
  Transmission Date: 20250115
  Serious: Yes (Other)
  Sender: PFIZER
  Company Number: CA-PFIZER INC-202400292994

PATIENT
  Age: 48 Year
  Sex: Female

DRUGS (2)
  1. METHOTREXATE SODIUM [Suspect]
     Active Substance: METHOTREXATE SODIUM
     Indication: Immunoglobulin G4 related disease
     Dosage: UNK
     Dates: start: 201704
  2. PREDNISONE [Concomitant]
     Active Substance: PREDNISONE
     Dosage: 60 MG, TAPERING OVER WEEKS, 1 TO 2 TIMES/YEAR

REACTIONS (10)
  - Laryngeal stenosis [Unknown]
  - Intraductal papillary mucinous neoplasm [Unknown]
  - Gingival swelling [Unknown]
  - Cyst [Recovering/Resolving]
  - Inflammation [Unknown]
  - Immunoglobulins increased [Unknown]
  - Gingival hypertrophy [Unknown]
  - Hypotension [Unknown]
  - Drug ineffective for unapproved indication [Unknown]
  - Off label use [Unknown]

NARRATIVE: CASE EVENT DATE: 20180101
